FAERS Safety Report 10027053 (Version 2)
Quarter: 2014Q2

REPORT INFORMATION
  Report Type: Report from Study
  Country: GB (occurrence: GB)
  Receive Date: 20140321
  Receipt Date: 20140415
  Transmission Date: 20141212
  Serious: Yes (Other)
  Sender: FDA-Public Use
  Company Number: GB-BRISTOL-MYERS SQUIBB COMPANY-20436994

PATIENT
  Age: 50 Year
  Sex: Female

DRUGS (6)
  1. ABATACEPT SUBQ INJECTION 125MG/ML [Suspect]
     Indication: RHEUMATOID ARTHRITIS
     Route: 058
     Dates: start: 20140127
  2. PREDNISOLONE [Concomitant]
  3. LANSOPRAZOLE [Concomitant]
  4. NABUMETONE [Concomitant]
  5. METHOTREXATE [Concomitant]
  6. FOLIC ACID [Concomitant]

REACTIONS (10)
  - Surgery [Unknown]
  - Abdominal discomfort [Unknown]
  - Epistaxis [Unknown]
  - Palpitations [Unknown]
  - Flushing [Unknown]
  - Nausea [Unknown]
  - Body temperature fluctuation [Unknown]
  - Pain [Unknown]
  - Pyrexia [Unknown]
  - Hyperhidrosis [Unknown]
